FAERS Safety Report 17481889 (Version 3)
Quarter: 2020Q2

REPORT INFORMATION
  Report Type: Spontaneous
  Country: JP (occurrence: JP)
  Receive Date: 20200302
  Receipt Date: 20200602
  Transmission Date: 20200713
  Serious: Yes (Death, Hospitalization, Other)
  Sender: FDA-Public Use
  Company Number: JP-ROCHE-2555877

PATIENT
  Age: 7 Decade
  Sex: Male
  Weight: 50 kg

DRUGS (2)
  1. HEMLIBRA [Suspect]
     Active Substance: EMICIZUMAB-KXWH
     Route: 058
     Dates: end: 20200206
  2. HEMLIBRA [Suspect]
     Active Substance: EMICIZUMAB-KXWH
     Indication: HAEMOPHILIA A WITHOUT INHIBITORS
     Route: 058

REACTIONS (4)
  - Prothrombin time prolonged [Unknown]
  - Pneumonia [Unknown]
  - Brain stem haemorrhage [Fatal]
  - Sepsis [Unknown]

NARRATIVE: CASE EVENT DATE: 202002
